FAERS Safety Report 9893067 (Version 1)
Quarter: 2014Q1

REPORT INFORMATION
  Report Type: Report from Study
  Country: US (occurrence: US)
  Receive Date: 20140213
  Receipt Date: 20140213
  Transmission Date: 20141002
  Serious: Yes (Death)
  Sender: FDA-Public Use
  Company Number: US-ROCHE-1328468

PATIENT
  Age: 56 Year
  Sex: Male
  Weight: 51.76 kg

DRUGS (17)
  1. AVASTIN [Suspect]
     Indication: COLORECTAL CANCER
     Route: 042
  2. ONDANSETRON [Concomitant]
     Route: 040
  3. OXALIPLATIN [Concomitant]
     Route: 042
  4. LEUCOVORIN [Concomitant]
     Route: 042
  5. 5-FU [Concomitant]
     Route: 042
  6. 5-FU [Concomitant]
     Route: 065
  7. 5-FU [Concomitant]
     Route: 065
  8. GABAPENTIN [Concomitant]
  9. ZOMETA [Concomitant]
     Route: 065
  10. DECADRON [Concomitant]
     Route: 065
  11. IRINOTECAN [Concomitant]
     Route: 042
  12. ATROPINE [Concomitant]
     Route: 042
  13. PROCRIT [Concomitant]
     Route: 058
  14. ARANESP [Concomitant]
     Route: 058
  15. POTASSIUM CHLORIDE [Concomitant]
     Route: 042
  16. POTASSIUM CHLORIDE [Concomitant]
     Route: 048
  17. LYRICA [Concomitant]

REACTIONS (5)
  - Death [Fatal]
  - Nausea [Unknown]
  - Anaemia [Unknown]
  - Neutropenia [Unknown]
  - Neuropathy peripheral [Unknown]
